FAERS Safety Report 24078173 (Version 1)
Quarter: 2024Q3

REPORT INFORMATION
  Report Type: Spontaneous
  Country: BD (occurrence: BD)
  Receive Date: 20240711
  Receipt Date: 20240711
  Transmission Date: 20241017
  Serious: Yes (Other)
  Sender: ALKEM
  Company Number: None

PATIENT
  Age: 32 Year
  Sex: Female

DRUGS (13)
  1. MYCOPHENOLATE MOFETIL [Suspect]
     Active Substance: MYCOPHENOLATE MOFETIL
     Indication: Immunosuppressant drug therapy
     Dosage: 1080 MILLIGRAM, QD (EVERY 1 DAY)
     Route: 048
  2. TACROLIMUS [Interacting]
     Active Substance: TACROLIMUS
     Indication: Immunosuppressant drug therapy
     Dosage: 0.1 MILLIGRAM/KILOGRAM, QD (EVERY 1 DAY)
     Route: 065
  3. TACROLIMUS [Interacting]
     Active Substance: TACROLIMUS
     Dosage: UNK (DECREASED DOSE)
     Route: 065
  4. METHYLPREDNISOLONE [Suspect]
     Active Substance: METHYLPREDNISOLONE
     Indication: Immunosuppressant drug therapy
     Dosage: 250 MILLIGRAM
     Route: 042
  5. METHYLPREDNISOLONE [Suspect]
     Active Substance: METHYLPREDNISOLONE
     Indication: Transplant rejection
     Dosage: 125 MILLIGRAM
     Route: 042
  6. METHYLPREDNISOLONE [Suspect]
     Active Substance: METHYLPREDNISOLONE
     Dosage: 500 MILLIGRAM
     Route: 042
  7. METHYLPREDNISOLONE [Suspect]
     Active Substance: METHYLPREDNISOLONE
     Dosage: 1500 MILLIGRAM (1 TOTAL)
     Route: 042
  8. ACYCLOVIR [Interacting]
     Active Substance: ACYCLOVIR
     Indication: Varicella zoster virus infection
     Dosage: 1200 MILLIGRAM, QD (EVERY 1 DAY)
     Route: 048
  9. ACYCLOVIR [Interacting]
     Active Substance: ACYCLOVIR
     Indication: Cytomegalovirus infection
     Dosage: UNK (OINTMENT)
     Route: 065
  10. ACYCLOVIR [Interacting]
     Active Substance: ACYCLOVIR
     Dosage: UNK (DECREASED DOSE)
     Route: 065
  11. PREDNISOLONE [Suspect]
     Active Substance: PREDNISOLONE
     Indication: Immunosuppressant drug therapy
     Dosage: 20 MILLIGRAM, QD EVERY 1 DAY)
     Route: 048
  12. Sofusbuvir, Velpatasvir [Concomitant]
     Indication: Antiviral prophylaxis
     Dosage: 1 DOSAGE FORM, QD (EVERY 1 DAY)
     Route: 065
  13. Sofusbuvir, Velpatasvir [Concomitant]
     Dosage: UNK, QD (400/100 MG/DAY)
     Route: 065

REACTIONS (8)
  - Trigeminal nerve disorder [Unknown]
  - Post herpetic neuralgia [Unknown]
  - Cytomegalovirus infection [Recovered/Resolved]
  - Varicella zoster virus infection [Recovered/Resolved]
  - Transplant rejection [Unknown]
  - Hepatitis C [Unknown]
  - Drug level increased [Unknown]
  - Drug interaction [Unknown]
